FAERS Safety Report 11053221 (Version 3)
Quarter: 2015Q2

REPORT INFORMATION
  Report Type: Spontaneous
  Country: US (occurrence: US)
  Receive Date: 20150421
  Receipt Date: 20150525
  Transmission Date: 20150821
  Serious: Yes (Other)
  Sender: FDA-Public Use
  Company Number: US-JNJFOC-20130504799

PATIENT
  Sex: Male

DRUGS (1)
  1. PATRIOT RISPERIDONE [Suspect]
     Active Substance: RISPERIDONE
     Indication: ATTENTION DEFICIT/HYPERACTIVITY DISORDER
     Dosage: 30 ML SOLUTION: 1 MG/ML
     Route: 048
     Dates: start: 20100910

REACTIONS (7)
  - Muscle spasms [Recovered/Resolved]
  - Headache [Recovered/Resolved]
  - Abnormal weight gain [Not Recovered/Not Resolved]
  - Abasia [Unknown]
  - Product use issue [Unknown]
  - Gynaecomastia [Not Recovered/Not Resolved]
  - Syncope [Recovered/Resolved]

NARRATIVE: CASE EVENT DATE: 2011
